FAERS Safety Report 6614526-3 (Version None)
Quarter: 2010Q1

REPORT INFORMATION
  Report Type: 
  Country: None (occurrence: None)
  Receive Date: 20100304
  Receipt Date: 20100304
  Transmission Date: 20100710
  Serious: Yes (Death)
  Sender: FDA-Public Use
  Company Number: None

PATIENT
  Age: 50 Year
  Sex: Male

DRUGS (4)
  1. REVLIMID [Suspect]
     Indication: MULTIPLE MYELOMA
     Dosage: 25MG DAILY ORALLY
     Route: 048
     Dates: start: 20090401, end: 20090601
  2. PROCRIT [Concomitant]
  3. OMEPRAZOLE [Concomitant]
  4. ACYCLOVIR [Concomitant]

REACTIONS (6)
  - DISEASE PROGRESSION [None]
  - HYPERTENSION [None]
  - OBESITY [None]
  - PATHOLOGICAL FRACTURE [None]
  - SPINAL FRACTURE [None]
  - STEM CELL TRANSPLANT [None]
